FAERS Safety Report 6511929-2 (Version None)
Quarter: 2009Q4

REPORT INFORMATION
  Report Type: 
  Country: None (occurrence: None)
  Receive Date: 20091222
  Receipt Date: 20090616
  Transmission Date: 20100525
  Serious: No
  Sender: FDA-Public Use
  Company Number: US-ASTRAZENECA-2009UW15294

PATIENT
  Age: 73 Year
  Sex: Female
  Weight: 86.2 kg

DRUGS (9)
  1. CRESTOR [Suspect]
     Route: 048
  2. ZETIA [Concomitant]
     Indication: BLOOD CHOLESTEROL
  3. SIMVASTATIN [Concomitant]
     Indication: BLOOD CHOLESTEROL
  4. LISINOPRIL [Concomitant]
     Indication: HYPERTENSION
  5. POTASSIUM [Concomitant]
     Indication: CARDIAC DISORDER
  6. PLAVIX [Concomitant]
     Indication: CARDIAC DISORDER
  7. ASPIRIN [Concomitant]
     Indication: CARDIAC DISORDER
  8. DIAZIDE [Concomitant]
     Indication: HYPERTENSION
  9. SOTALOL HCL [Concomitant]
     Indication: CARDIAC DISORDER

REACTIONS (1)
  - PAIN IN EXTREMITY [None]
